FAERS Safety Report 21122125 (Version 1)
Quarter: 2022Q3

REPORT INFORMATION
  Report Type: Spontaneous
  Country: US (occurrence: US)
  Receive Date: 20220722
  Receipt Date: 20220722
  Transmission Date: 20221026
  Serious: No
  Sender: FDA-Public Use
  Company Number: US-SA-SAC20220720000973

PATIENT
  Age: 16 Year
  Sex: Male

DRUGS (9)
  1. DUPIXENT [Suspect]
     Active Substance: DUPILUMAB
     Indication: Prurigo
     Dosage: 300 MG, QOW
     Route: 058
     Dates: start: 20200218
  2. DUPIXENT [Suspect]
     Active Substance: DUPILUMAB
     Indication: Dermatitis
  3. LUMIFY [Concomitant]
     Active Substance: BRIMONIDINE TARTRATE
  4. BACTRIM [Concomitant]
     Active Substance: SULFAMETHOXAZOLE\TRIMETHOPRIM
  5. CLOBETASOL [Concomitant]
     Active Substance: CLOBETASOL
  6. DOXYCYCLINE [Concomitant]
     Active Substance: DOXYCYCLINE
  7. EUCRISA [Concomitant]
     Active Substance: CRISABOROLE
  8. HYDROXYZINE [Concomitant]
     Active Substance: HYDROXYZINE HYDROCHLORIDE
  9. DESONIDE [Concomitant]
     Active Substance: DESONIDE

REACTIONS (3)
  - Ocular hyperaemia [Unknown]
  - Dry eye [Unknown]
  - Product use in unapproved indication [Unknown]

NARRATIVE: CASE EVENT DATE: 20200218
